FAERS Safety Report 7786877-0 (Version None)
Quarter: 2011Q3

REPORT INFORMATION
  Report Type: 
  Country: None (occurrence: None)
  Receive Date: 20110929
  Receipt Date: 20100311
  Transmission Date: 20111222
  Serious: Yes (Hospitalization)
  Sender: FDA-Public Use
  Company Number: JP-MERCK-1003USA02335

PATIENT
  Age: 76 Year
  Sex: Female

DRUGS (1)
  1. FOSAMAX [Suspect]
     Route: 048
     Dates: start: 20080701, end: 20090828

REACTIONS (2)
  - PERIOSTITIS [None]
  - GINGIVAL SWELLING [None]
